FAERS Safety Report 17913354 (Version 1)
Quarter: 2020Q2

REPORT INFORMATION
  Report Type: Spontaneous
  Country: US (occurrence: US)
  Receive Date: 20200618
  Receipt Date: 20200618
  Transmission Date: 20200714
  Serious: No
  Sender: FDA-Public Use
  Company Number: US-THERAPEUTICSMD-2020TMD01443

PATIENT
  Age: 53 Year
  Sex: Female
  Weight: 70.3 kg

DRUGS (4)
  1. IMVEXXY [Suspect]
     Active Substance: ESTRADIOL
     Indication: MENOPAUSE
     Dosage: 10 ?G, 1X/DAY, AT BEDTIME
     Route: 067
     Dates: start: 20200304
  2. IMVEXXY [Suspect]
     Active Substance: ESTRADIOL
     Indication: VULVOVAGINAL DRYNESS
  3. BIJUVA [Suspect]
     Active Substance: ESTRADIOL\PROGESTERONE
     Indication: MENOPAUSE
     Dosage: 1 DOSAGE UNITS, 1X/DAY IN EVENING
     Dates: start: 20200304
  4. BIJUVA [Suspect]
     Active Substance: ESTRADIOL\PROGESTERONE
     Indication: VULVOVAGINAL DRYNESS

REACTIONS (3)
  - Fungal infection [Not Recovered/Not Resolved]
  - Vaginal odour [Not Recovered/Not Resolved]
  - Off label use [Not Recovered/Not Resolved]

NARRATIVE: CASE EVENT DATE: 20200304
